FAERS Safety Report 7494339-3 (Version None)
Quarter: 2011Q2

REPORT INFORMATION
  Report Type: 
  Country: None (occurrence: None)
  Receive Date: 20110520
  Receipt Date: 20110511
  Transmission Date: 20111010
  Serious: Yes (Other)
  Sender: FDA-Public Use
  Company Number: US-MERCK-1105USA01754

PATIENT
  Age: 77 Year
  Sex: Female

DRUGS (2)
  1. FOSAMAX [Suspect]
     Route: 048
  2. FORTEO [Suspect]
     Route: 065

REACTIONS (6)
  - PRURITUS [None]
  - BONE DISORDER [None]
  - FEMUR FRACTURE [None]
  - SEASONAL ALLERGY [None]
  - SINUSITIS [None]
  - DRUG INEFFECTIVE [None]
